FAERS Safety Report 8765865 (Version 2)
Quarter: 2012Q4

REPORT INFORMATION
  Report Type: 
  Country: US (occurrence: US)
  Receive Date: 20120904
  Receipt Date: 20120926
  Transmission Date: 20130627
  Serious: No
  Sender: FDA-Public Use
  Company Number: US-009507513-1208USA009394

PATIENT
  Age: 69 None
  Sex: Female
  Weight: 80.73 kg

DRUGS (5)
  1. MIRALAX [Suspect]
     Indication: CONSTIPATION
     Dosage: UNK, qd
     Route: 048
     Dates: start: 20120804, end: 20120810
  2. MIRALAX [Suspect]
     Indication: MEDICAL OBSERVATION
     Dosage: 17 g, qd
     Route: 048
     Dates: start: 20120705
  3. PREDNISONE [Concomitant]
     Indication: PRODUCT USED FOR UNKNOWN INDICATION
     Dosage: UNK, Unknown
  4. OMEPRAZOLE [Concomitant]
     Indication: HIATUS HERNIA
     Dosage: UNK, Unknown
  5. VITAMINS (UNSPECIFIED) [Concomitant]
     Indication: PRODUCT USED FOR UNKNOWN INDICATION
     Dosage: UNK, Unknown

REACTIONS (3)
  - Abdominal distension [Recovered/Resolved]
  - Oropharyngeal discomfort [Recovered/Resolved]
  - Drug ineffective [Unknown]
